FAERS Safety Report 11812126 (Version 5)
Quarter: 2016Q2

REPORT INFORMATION
  Report Type: Report from Study
  Country: JP (occurrence: JP)
  Receive Date: 20151208
  Receipt Date: 20160425
  Transmission Date: 20160815
  Serious: Yes (Hospitalization, Disabling)
  Sender: FDA-Public Use
  Company Number: JP-B.I. PHARMACEUTICALS,INC./RIDGEFIELD-2013-BI-37423NB

PATIENT
  Age: 82 Year
  Sex: Female
  Weight: 47 kg

DRUGS (4)
  1. PRAZAXA [Suspect]
     Active Substance: DABIGATRAN ETEXILATE MESYLATE
     Indication: CEREBROVASCULAR ACCIDENT PROPHYLAXIS
     Dosage: 220 MG
     Route: 048
     Dates: start: 20120629, end: 20121129
  2. MAINTATE [Concomitant]
     Active Substance: BISOPROLOL FUMARATE
     Indication: PRODUCT USED FOR UNKNOWN INDICATION
     Dosage: 5 MG
     Route: 048
     Dates: start: 20120629
  3. TANATRIL [Concomitant]
     Active Substance: IMIDAPRIL
     Indication: PRODUCT USED FOR UNKNOWN INDICATION
     Dosage: 5 MG
     Route: 048
     Dates: start: 20121013, end: 20121129
  4. ATORVASTATIN [Concomitant]
     Active Substance: ATORVASTATIN
     Indication: PRODUCT USED FOR UNKNOWN INDICATION
     Dosage: 10 MG
     Route: 048
     Dates: start: 20121013, end: 20121129

REACTIONS (3)
  - Cerebral infarction [Recovered/Resolved with Sequelae]
  - Drug ineffective [Unknown]
  - Heat illness [Recovered/Resolved]

NARRATIVE: CASE EVENT DATE: 20120725
